FAERS Safety Report 17283145 (Version 1)
Quarter: 2020Q1

REPORT INFORMATION
  Report Type: Spontaneous
  Country: FR (occurrence: FR)
  Receive Date: 20200117
  Receipt Date: 20200117
  Transmission Date: 20200409
  Serious: Yes (Other)
  Sender: FDA-Public Use
  Company Number: FR-BEH-2020111798

PATIENT
  Age: 41 Year
  Sex: Male
  Weight: 84 kg

DRUGS (1)
  1. PRIVIGEN [Suspect]
     Active Substance: HUMAN IMMUNOGLOBULIN G
     Indication: POLYNEUROPATHY CHRONIC
     Dosage: 180 GRAM, CYCLICAL
     Route: 042
     Dates: start: 2017, end: 2019

REACTIONS (4)
  - Product use in unapproved indication [Unknown]
  - Polyneuropathy chronic [Not Recovered/Not Resolved]
  - No adverse event [Unknown]
  - Oral herpes [Not Recovered/Not Resolved]

NARRATIVE: CASE EVENT DATE: 2017
